FAERS Safety Report 14248563 (Version 1)
Quarter: 2017Q4

REPORT INFORMATION
  Report Type: Spontaneous
  Country: US (occurrence: US)
  Receive Date: 20171202
  Receipt Date: 20171202
  Transmission Date: 20180321
  Serious: Yes (Death, Life-Threatening, Hospitalization, Disabling)
  Sender: FDA-Public Use
  Company Number: None

PATIENT
  Age: 63 Year
  Sex: Male
  Weight: 59.85 kg

DRUGS (8)
  1. LORAZEPAM. [Suspect]
     Active Substance: LORAZEPAM
     Indication: MOOD SWINGS
     Dosage: ?          OTHER STRENGTH:NA;QUANTITY:1 TABLET(S);?
     Route: 048
  2. HYDROCODONE [Concomitant]
     Active Substance: HYDROCODONE
  3. METOPROLOL. [Concomitant]
     Active Substance: METOPROLOL
  4. OLANZAPINE. [Concomitant]
     Active Substance: OLANZAPINE
  5. LANTUS [Concomitant]
     Active Substance: INSULIN GLARGINE
  6. LEVOTHYROXINE. [Concomitant]
     Active Substance: LEVOTHYROXINE
  7. LISINOPRIL. [Concomitant]
     Active Substance: LISINOPRIL
  8. METFORMIN [Concomitant]
     Active Substance: METFORMIN HYDROCHLORIDE

REACTIONS (6)
  - Blood pressure decreased [None]
  - Inappropriate prescribing [None]
  - Confusional state [None]
  - Irritability [None]
  - Lethargy [None]
  - Drug interaction [None]

NARRATIVE: CASE EVENT DATE: 20171107
